FAERS Safety Report 4664790-5 (Version None)
Quarter: 2005Q2

REPORT INFORMATION
  Report Type: 
  Country: None (occurrence: None)
  Receive Date: 20050516
  Receipt Date: 20050509
  Transmission Date: 20051028
  Serious: Yes (Hospitalization, Other)
  Sender: FDA-Public Use
  Company Number: 2005-05-0442

PATIENT
  Age: 69 Year
  Sex: Male
  Weight: 67 kg

DRUGS (8)
  1. PEG-INTRON [Suspect]
     Indication: HEPATITIS C
     Dosage: SEE IMAGE
     Route: 058
     Dates: start: 20050128, end: 20050411
  2. PEG-INTRON [Suspect]
     Indication: HEPATITIS C
     Dosage: SEE IMAGE
     Route: 058
     Dates: start: 20050128, end: 20050428
  3. PEG-INTRON [Suspect]
     Indication: HEPATITIS C
     Dosage: SEE IMAGE
     Route: 058
     Dates: start: 20050418, end: 20050428
  4. REBETOL [Suspect]
     Indication: HEPATITIS C
     Dosage: SEE IMAGE
     Route: 048
     Dates: start: 20050128, end: 20050417
  5. REBETOL [Suspect]
     Indication: HEPATITIS C
     Dosage: SEE IMAGE
     Route: 048
     Dates: start: 20050128, end: 20050426
  6. NORVASC [Concomitant]
  7. TAKEPRON (LANSOPRAZOLE) [Concomitant]
  8. REBAMIPIDE ORAL [Concomitant]

REACTIONS (5)
  - ANAEMIA [None]
  - ANOREXIA [None]
  - DYSPNOEA [None]
  - INFLUENZA [None]
  - POLLAKIURIA [None]
